FAERS Safety Report 6931292-2 (Version None)
Quarter: 2010Q3

REPORT INFORMATION
  Report Type: 
  Country: None (occurrence: None)
  Receive Date: 20100816
  Receipt Date: 20100803
  Transmission Date: 20110219
  Serious: Yes (Hospitalization)
  Sender: FDA-Public Use
  Company Number: 2010-2720

PATIENT
  Sex: Female

DRUGS (1)
  1. APO-GO PFS (APO-GO)(APOMORPHINE HYDROCHLORIDE)(APOMORPHINE HYDROCHLORI [Suspect]
     Indication: PRODUCT USED FOR UNKNOWN INDICATION
     Dosage: (11 HOURS/DAY), SUBCUTANEOUS
     Route: 058
     Dates: start: 20100413

REACTIONS (1)
  - MUSCLE RIGIDITY [None]
